FAERS Safety Report 10367357 (Version 1)
Quarter: 2014Q3

REPORT INFORMATION
  Report Type: Spontaneous
  Country: US (occurrence: None)
  Receive Date: 20140805
  Receipt Date: 20140805
  Transmission Date: 20150326
  Serious: No
  Sender: FDA-Public Use
  Company Number: None

PATIENT
  Age: 64 Year
  Sex: Male

DRUGS (9)
  1. COLACE [Concomitant]
     Active Substance: DOCUSATE SODIUM
  2. TYLENOL [Concomitant]
     Active Substance: ACETAMINOPHEN
  3. CEFAZOLIN [Suspect]
     Active Substance: CEFAZOLIN
     Indication: PROPHYLAXIS
     Dates: start: 20130205, end: 20130206
  4. OXYCODONE [Concomitant]
     Active Substance: OXYCODONE
  5. TRAMADOL [Concomitant]
     Active Substance: TRAMADOL
  6. CELEBREX [Concomitant]
     Active Substance: CELECOXIB
  7. CEFAZOLIN [Suspect]
     Active Substance: CEFAZOLIN
     Indication: SURGERY
     Dates: start: 20130205, end: 20130206
  8. DALTEPARIN [Suspect]
     Active Substance: DALTEPARIN
     Indication: THROMBOSIS PROPHYLAXIS
     Dates: start: 20130206, end: 20130220
  9. ASPIRIN. [Concomitant]
     Active Substance: ASPIRIN

REACTIONS (2)
  - Hepatic cyst [None]
  - Drug-induced liver injury [None]

NARRATIVE: CASE EVENT DATE: 20130223
